FAERS Safety Report 21132385 (Version 5)
Quarter: 2024Q3

REPORT INFORMATION
  Report Type: Report from Study
  Country: US (occurrence: US)
  Receive Date: 20220726
  Receipt Date: 20240719
  Transmission Date: 20241016
  Serious: Yes (Other)
  Sender: TAKEDA
  Company Number: US-TAKEDA-US201940730

PATIENT
  Sex: Male

DRUGS (5)
  1. HUMAN IMMUNOGLOBULIN G [Suspect]
     Active Substance: HUMAN IMMUNOGLOBULIN G
     Indication: Hypogammaglobulinaemia
     Dosage: UNK
     Route: 065
  2. HUMAN IMMUNOGLOBULIN G [Suspect]
     Active Substance: HUMAN IMMUNOGLOBULIN G
     Indication: Hypogammaglobulinaemia
     Dosage: UNK
     Route: 065
  3. HUMAN IMMUNOGLOBULIN G [Suspect]
     Active Substance: HUMAN IMMUNOGLOBULIN G
     Indication: Primary immunodeficiency syndrome
  4. HUMAN IMMUNOGLOBULIN G [Suspect]
     Active Substance: HUMAN IMMUNOGLOBULIN G
     Indication: Primary immunodeficiency syndrome
  5. CUVITRU [Suspect]
     Active Substance: HUMAN IMMUNOGLOBULIN G
     Indication: Primary immunodeficiency syndrome
     Dosage: UNK UNK, 1/WEEK
     Route: 058

REACTIONS (20)
  - Upper limb fracture [Unknown]
  - Limb injury [Unknown]
  - Acne [Recovered/Resolved]
  - Eczema [Recovered/Resolved]
  - Arthropathy [Unknown]
  - Infusion related reaction [Unknown]
  - Weight decreased [Unknown]
  - Concussion [Unknown]
  - Respiratory tract infection viral [Unknown]
  - Skin disorder [Unknown]
  - Product distribution issue [Unknown]
  - Insurance issue [Not Recovered/Not Resolved]
  - Decreased immune responsiveness [Unknown]
  - Product use issue [Unknown]
  - Swelling [Unknown]
  - Infusion site swelling [Unknown]
  - Pallor [Unknown]
  - Headache [Unknown]
  - Abdominal discomfort [Unknown]
  - Fatigue [Unknown]
